FAERS Safety Report 17678449 (Version 1)
Quarter: 2020Q2

REPORT INFORMATION
  Report Type: Spontaneous
  Country: GR (occurrence: GR)
  Receive Date: 20200417
  Receipt Date: 20200417
  Transmission Date: 20200714
  Serious: Yes (Other)
  Sender: FDA-Public Use
  Company Number: GR-BEH-2020115991

PATIENT
  Age: 12 Month
  Sex: Male

DRUGS (4)
  1. HUMAN IMMUNOGLOBULIN (INN) [Suspect]
     Active Substance: HUMAN IMMUNOGLOBULIN G
     Indication: KAWASAKI^S DISEASE
     Dosage: 2 GRAM PER KILOGRAM
     Route: 042
  2. ASPIRIN (E.C.) [Suspect]
     Active Substance: ASPIRIN
     Indication: KAWASAKI^S DISEASE
     Dosage: 80 MILLIGRAM/KILOGRAM
     Route: 048
  3. ASPIRIN (E.C.) [Suspect]
     Active Substance: ASPIRIN
     Dosage: 3 MILLIGRAM/KILOGRAM
     Route: 048
  4. ASPIRIN (E.C.) [Suspect]
     Active Substance: ASPIRIN
     Dosage: 5 MILLIGRAM/KILOGRAM
     Route: 048

REACTIONS (5)
  - Haemoglobin decreased [Recovered/Resolved]
  - Reticulocyte count increased [Recovered/Resolved]
  - Blood lactate dehydrogenase increased [Recovered/Resolved]
  - Coombs direct test positive [Recovered/Resolved]
  - Haemolytic anaemia [Recovered/Resolved]
